FAERS Safety Report 8763867 (Version 1)
Quarter: 2012Q4

REPORT INFORMATION
  Report Type: 
  Country: VE (occurrence: VE)
  Receive Date: 20120831
  Receipt Date: 20120831
  Transmission Date: 20130627
  Serious: Yes (Hospitalization)
  Sender: FDA-Public Use
  Company Number: PHHY2012VE074725

PATIENT
  Sex: Male

DRUGS (3)
  1. SANDOSTATIN LAR [Suspect]
     Indication: PANCREATIC CARCINOMA
     Dosage: 20 mg, per month
     Dates: start: 2006
  2. GLUCOPHAGE XR [Concomitant]
     Dosage: 1 g, once a day
     Route: 048
  3. CLONAC [Concomitant]

REACTIONS (3)
  - Parkinson^s disease [Recovering/Resolving]
  - Neoplasm recurrence [Recovering/Resolving]
  - Pancreatic neoplasm [None]
